FAERS Safety Report 5407679-6 (Version None)
Quarter: 2007Q3

REPORT INFORMATION
  Report Type: 
  Country: None (occurrence: None)
  Receive Date: 20070803
  Receipt Date: 20070723
  Transmission Date: 20080115
  Serious: Yes (Other)
  Sender: FDA-Public Use
  Company Number: 02100-USA-07-0016

PATIENT
  Age: 85 Year
  Sex: Female

DRUGS (1)
  1. CILOSTAZOL [Suspect]
     Indication: CONTUSION

REACTIONS (2)
  - MUSCULOSKELETAL STIFFNESS [None]
  - PARALYSIS [None]
